FAERS Safety Report 25443457 (Version 1)
Quarter: 2025Q2

REPORT INFORMATION
  Report Type: Report from Study
  Country: CO (occurrence: CO)
  Receive Date: 20250617
  Receipt Date: 20250617
  Transmission Date: 20250716
  Serious: Yes (Hospitalization, Other)
  Sender: ABBVIE
  Company Number: CO-ABBVIE-6322949

PATIENT
  Age: 64 Year
  Sex: Female

DRUGS (1)
  1. VENCLEXTA [Suspect]
     Active Substance: VENETOCLAX
     Indication: Chronic lymphocytic leukaemia
     Dosage: VIAL 100 MG
     Route: 048
     Dates: start: 20230517, end: 20250404

REACTIONS (2)
  - Eye injury [Unknown]
  - Fall [Unknown]

NARRATIVE: CASE EVENT DATE: 20250405
